FAERS Safety Report 15119104 (Version 1)
Quarter: 2018Q3

REPORT INFORMATION
  Report Type: Spontaneous
  Country: DE (occurrence: DE)
  Receive Date: 20180709
  Receipt Date: 20180709
  Transmission Date: 20181010
  Serious: Yes (Hospitalization)
  Sender: FDA-Public Use
  Company Number: DE-AUROBINDO-AUR-APL-2018-034670

PATIENT
  Age: 67 Year
  Weight: 93 kg

DRUGS (13)
  1. BEVACIZUMAB. [Suspect]
     Active Substance: BEVACIZUMAB
     Dosage: 465 MILLIGRAM, 2 WEEK, LAST DOSE PRIOR TO EVENT 13/JAN/2014
     Route: 042
     Dates: start: 20140113
  2. 5?FU                               /00098801/ [Concomitant]
     Active Substance: FLUOROURACIL
     Indication: PRODUCT USED FOR UNKNOWN INDICATION
     Dosage: 1900 MILLIGRAM
     Route: 041
     Dates: start: 20130708, end: 20130730
  3. 5?FU                               /00098801/ [Concomitant]
     Active Substance: FLUOROURACIL
     Dosage: 2400 MILLIGRAM
     Route: 041
     Dates: start: 20130304, end: 20130625
  4. MORPHINE SULFATE. [Concomitant]
     Active Substance: MORPHINE SULFATE
     Indication: PAIN
     Dosage: 20?20?10 MG PER DAY. ()
     Route: 058
     Dates: start: 20140109
  5. OXALIPLATIN. [Suspect]
     Active Substance: OXALIPLATIN
     Indication: PRODUCT USED FOR UNKNOWN INDICATION
     Dosage: 130 MILLIGRAM
     Route: 065
     Dates: start: 20130530, end: 20130729
  6. OXALIPLATIN. [Suspect]
     Active Substance: OXALIPLATIN
     Dosage: 100 MILLIGRAM, 2 WEEK
     Route: 042
     Dates: start: 20140113
  7. FOLINIC ACID [Suspect]
     Active Substance: LEUCOVORIN
     Dosage: 400 MILLIGRAM, 2 WEEK
     Route: 042
     Dates: start: 20140113
  8. 5?FU                               /00098801/ [Concomitant]
     Active Substance: FLUOROURACIL
     Dosage: 800 MILLIGRAM
     Route: 040
     Dates: start: 20130304, end: 20130629
  9. OXALIPLATIN. [Suspect]
     Active Substance: OXALIPLATIN
     Indication: COLORECTAL CANCER METASTATIC
     Dosage: 170 MILLIGRAM
     Route: 065
     Dates: start: 20130304, end: 20130415
  10. FOLINIC ACID [Suspect]
     Active Substance: LEUCOVORIN
     Indication: PRODUCT USED FOR UNKNOWN INDICATION
     Dosage: 400 MILLIGRAM
     Route: 065
     Dates: start: 20130304, end: 20130708
  11. BEVACIZUMAB. [Suspect]
     Active Substance: BEVACIZUMAB
     Indication: COLORECTAL CANCER METASTATIC
     Dosage: 465 MILLIGRAM
     Route: 065
     Dates: start: 20130304, end: 20130729
  12. 5?FU                               /00098801/ [Concomitant]
     Active Substance: FLUOROURACIL
     Dosage: 800 MILLIGRAM, 2 WEEK
     Route: 042
     Dates: start: 20140113
  13. 5?FU                               /00098801/ [Concomitant]
     Active Substance: FLUOROURACIL
     Dosage: 2400 MILLIGRAM, 2 WEEK
     Route: 042
     Dates: start: 20140113

REACTIONS (2)
  - Stomatitis [Recovered/Resolved]
  - Stoma site abscess [Recovered/Resolved]

NARRATIVE: CASE EVENT DATE: 20130626
